FAERS Safety Report 16584162 (Version 2)
Quarter: 2019Q3

REPORT INFORMATION
  Report Type: Spontaneous
  Country: US (occurrence: US)
  Receive Date: 20190717
  Receipt Date: 20190722
  Transmission Date: 20191004
  Serious: No
  Sender: FDA-Public Use
  Company Number: US-009507513-1907USA001774

PATIENT
  Sex: Male

DRUGS (1)
  1. TICE BCG [Suspect]
     Active Substance: BACILLUS CALMETTE-GUERIN SUBSTRAIN TICE LIVE ANTIGEN
     Indication: BLADDER CANCER
     Dosage: 1 VIAL, UNK
     Route: 043

REACTIONS (4)
  - Depression [Not Recovered/Not Resolved]
  - Product dose omission [Unknown]
  - Hernia [Not Recovered/Not Resolved]
  - Product availability issue [Unknown]
